FAERS Safety Report 23307279 (Version 3)
Quarter: 2024Q1

REPORT INFORMATION
  Report Type: Other
  Country: CA (occurrence: None)
  Receive Date: 20231218
  Receipt Date: 20240125
  Transmission Date: 20240410
  Serious: No
  Sender: FDA-Public Use
  Company Number: CA-ROCHE-2525335

PATIENT
  Age: 44 Year
  Sex: Male

DRUGS (12)
  1. OCREVUS [Suspect]
     Active Substance: OCRELIZUMAB
     Indication: Relapsing-remitting multiple sclerosis
     Dosage: 300 MG AT DAY 0 AND 14, THEN 600 MG EVERY 6 MONTH
     Route: 042
     Dates: start: 20200106, end: 20240102
  2. OCREVUS [Suspect]
     Active Substance: OCRELIZUMAB
     Route: 042
  3. BENADRYL [Suspect]
     Active Substance: DIPHENHYDRAMINE HYDROCHLORIDE
     Indication: Product used for unknown indication
     Route: 065
  4. TERBINAFINE [Suspect]
     Active Substance: TERBINAFINE
     Indication: Streptococcal infection
     Route: 065
  5. TERBINAFINE [Suspect]
     Active Substance: TERBINAFINE
     Indication: Fungal infection
  6. DALFAMPRIDINE [Concomitant]
     Active Substance: DALFAMPRIDINE
  7. MODAFINIL [Concomitant]
     Active Substance: MODAFINIL
     Indication: Fatigue
     Dosage: AS REQUIRED
  8. CYCLOBENZAPRINE [Concomitant]
     Active Substance: CYCLOBENZAPRINE
  9. MYRBETRIQ [Concomitant]
     Active Substance: MIRABEGRON
     Dosage: FOR THE BLADDER
  10. CANNABIS SATIVA SUBSP. INDICA TOP [Concomitant]
     Active Substance: CANNABIS SATIVA SUBSP. INDICA TOP
  11. ESCITALOPRAM [Concomitant]
     Active Substance: ESCITALOPRAM OXALATE
  12. PREDNISONE [Concomitant]
     Active Substance: PREDNISONE

REACTIONS (13)
  - Fatigue [Recovered/Resolved]
  - Back pain [Recovering/Resolving]
  - Fatigue [Not Recovered/Not Resolved]
  - Muscular weakness [Recovered/Resolved]
  - Pain in extremity [Recovered/Resolved]
  - Muscle spasms [Not Recovered/Not Resolved]
  - Streptococcal infection [Not Recovered/Not Resolved]
  - Fungal infection [Not Recovered/Not Resolved]
  - Muscular weakness [Not Recovered/Not Resolved]
  - Peripheral swelling [Not Recovered/Not Resolved]
  - Drug ineffective [Unknown]
  - Psoriasis [Not Recovered/Not Resolved]
  - Psoriatic arthropathy [Not Recovered/Not Resolved]

NARRATIVE: CASE EVENT DATE: 20200106
